FAERS Safety Report 21990035 (Version 3)
Quarter: 2023Q1

REPORT INFORMATION
  Report Type: Spontaneous
  Country: IE (occurrence: IE)
  Receive Date: 20230214
  Receipt Date: 20230323
  Transmission Date: 20230417
  Serious: Yes (Life-Threatening, Hospitalization, Other)
  Sender: FDA-Public Use
  Company Number: IE-STADA-269084

PATIENT
  Age: 33 Week
  Sex: Female

DRUGS (7)
  1. LEVETIRACETAM [Suspect]
     Active Substance: LEVETIRACETAM
     Indication: Dyskinesia
     Dosage: 60 MILLIGRAM/KILOGRAM, TWO DOSES
  2. LORAZEPAM [Suspect]
     Active Substance: LORAZEPAM
     Indication: Dyskinesia
     Dosage: 0.1 MILLIGRAM/KILOGRAM, TWO DOSES
  3. PHENOBARBITAL [Suspect]
     Active Substance: PHENOBARBITAL
     Indication: Dyskinesia
     Dosage: 40 MILLIGRAM/KILOGRAM, TWO DOSES
  4. DULOXETINE [Suspect]
     Active Substance: DULOXETINE
     Indication: Fibromyalgia
     Dosage: 60 MILLIGRAM, ONCE DAILY (QD)
  5. ATROPINE [Concomitant]
     Active Substance: ATROPINE
     Indication: Dyskinesia
     Dosage: 0.01 MILLIGRAM/KILOGRAM
  6. FENTANYL [Concomitant]
     Active Substance: FENTANYL
     Indication: Dyskinesia
     Dosage: 2 MICROGRAM/KILOGRAM
  7. SUXAMETHONIUM BROMIDE [Concomitant]
     Active Substance: SUXAMETHONIUM BROMIDE
     Indication: Dyskinesia
     Dosage: 2 MILLIGRAM/KILOGRAM

REACTIONS (8)
  - Respiratory failure [Unknown]
  - Foetal exposure during pregnancy [Unknown]
  - Dyskinesia [Unknown]
  - Apnoea [Not Recovered/Not Resolved]
  - Respiratory disorder neonatal [Not Recovered/Not Resolved]
  - Multiple-drug resistance [Unknown]
  - Premature baby [Unknown]
  - Hypotonia [Not Recovered/Not Resolved]
